FAERS Safety Report 6494849-1 (Version None)
Quarter: 2009Q4

REPORT INFORMATION
  Report Type: 
  Country: None (occurrence: None)
  Receive Date: 20091214
  Receipt Date: 20090714
  Transmission Date: 20100525
  Serious: No
  Sender: FDA-Public Use
  Company Number: US-BRISTOL-MYERS SQUIBB COMPANY-14569362

PATIENT
  Age: 16 Year
  Sex: Female

DRUGS (1)
  1. ABILIFY [Suspect]
     Indication: BIPOLAR DISORDER
     Dosage: 2MG TAKE 1/2 EVERY DAY
     Dates: start: 20081121

REACTIONS (3)
  - ANGER [None]
  - DRUG INEFFECTIVE [None]
  - MOOD SWINGS [None]
